FAERS Safety Report 11741099 (Version 2)
Quarter: 2015Q4

REPORT INFORMATION
  Report Type: Spontaneous
  Country: CZ (occurrence: CZ)
  Receive Date: 20151116
  Receipt Date: 20151203
  Transmission Date: 20160304
  Serious: Yes (Hospitalization)
  Sender: FDA-Public Use
  Company Number: CZ-ROCHE-1660966

PATIENT
  Sex: Male

DRUGS (2)
  1. ZELBORAF [Suspect]
     Active Substance: VEMURAFENIB
     Indication: MALIGNANT MELANOMA
     Route: 048
     Dates: start: 20150123
  2. ASENTRA [Concomitant]
     Indication: DEPRESSION
     Route: 048
     Dates: start: 201412

REACTIONS (3)
  - Cardiac failure [Recovered/Resolved with Sequelae]
  - Pleuropericarditis [Recovered/Resolved with Sequelae]
  - Bacterial pericarditis [Unknown]

NARRATIVE: CASE EVENT DATE: 20151013
